FAERS Safety Report 25009477 (Version 1)
Quarter: 2025Q1

REPORT INFORMATION
  Report Type: Spontaneous
  Country: US (occurrence: US)
  Receive Date: 20250225
  Receipt Date: 20250225
  Transmission Date: 20250409
  Serious: Yes (Hospitalization, Other)
  Sender: RANBAXY
  Company Number: US-SUN PHARMACEUTICAL INDUSTRIES LTD-2025R1-495460

PATIENT
  Age: 17 Year
  Sex: Female

DRUGS (4)
  1. DICYCLOMINE [Suspect]
     Active Substance: DICYCLOMINE HYDROCHLORIDE
     Indication: Constipation
     Route: 065
  2. DICYCLOMINE [Suspect]
     Active Substance: DICYCLOMINE HYDROCHLORIDE
     Indication: Abdominal pain
  3. GABAPENTIN [Suspect]
     Active Substance: GABAPENTIN
     Indication: Abdominal pain
     Route: 065
  4. GABAPENTIN [Suspect]
     Active Substance: GABAPENTIN
     Indication: Constipation

REACTIONS (1)
  - Therapy non-responder [Unknown]
